FAERS Safety Report 12219218 (Version 1)
Quarter: 2016Q1

REPORT INFORMATION
  Report Type: Other
  Country: US (occurrence: US)
  Receive Date: 20160329
  Receipt Date: 20160329
  Transmission Date: 20160526
  Serious: No
  Sender: FDA-Public Use
  Company Number: US-CTI_01710_2015

PATIENT

DRUGS (1)
  1. CARDENE [Suspect]
     Active Substance: NICARDIPINE HYDROCHLORIDE
     Indication: PRODUCT USED FOR UNKNOWN INDICATION
     Dosage: DRUG NOT GIVEN

REACTIONS (2)
  - Product quality issue [Recovered/Resolved]
  - Product packaging confusion [Recovered/Resolved]
